FAERS Safety Report 10495854 (Version 1)
Quarter: 2014Q3

REPORT INFORMATION
  Report Type: Spontaneous
  Country: US (occurrence: None)
  Receive Date: 20140815
  Receipt Date: 20140815
  Transmission Date: 20150326
  Serious: Yes (Hospitalization, Other)
  Sender: FDA-Public Use
  Company Number: ADR-2013-01842

PATIENT
  Age: 27 Year
  Sex: Male

DRUGS (1)
  1. BACLOFEN. [Suspect]
     Active Substance: BACLOFEN
     Indication: MUSCLE SPASTICITY

REACTIONS (11)
  - Head injury [None]
  - Muscle spasticity [None]
  - Pain [None]
  - Unevaluable event [None]
  - Fall [None]
  - Pyrexia [None]
  - Generalised tonic-clonic seizure [None]
  - Implant site pain [None]
  - Hypertonia [None]
  - Pneumonia [None]
  - No therapeutic response [None]
